FAERS Safety Report 10136660 (Version 1)
Quarter: 2014Q2

REPORT INFORMATION
  Report Type: Spontaneous
  Country: US (occurrence: US)
  Receive Date: 20140429
  Receipt Date: 20140429
  Transmission Date: 20141212
  Serious: No
  Sender: FDA-Public Use
  Company Number: US-BAYER-2014-056848

PATIENT
  Age: 81 Year
  Sex: Male

DRUGS (3)
  1. XOFIGO [Suspect]
     Dosage: UNK
     Route: 042
  2. XOFIGO [Suspect]
     Route: 042
  3. XOFIGO [Suspect]
     Dosage: UNK
     Route: 042
     Dates: start: 20140221, end: 20140221

REACTIONS (1)
  - Haemoglobin decreased [None]
